FAERS Safety Report 16153758 (Version 1)
Quarter: 2019Q2

REPORT INFORMATION
  Report Type: Spontaneous
  Country: US (occurrence: US)
  Receive Date: 20190403
  Receipt Date: 20190403
  Transmission Date: 20190711
  Serious: Yes (Hospitalization)
  Sender: FDA-Public Use
  Company Number: US-PFIZER INC-2019135410

PATIENT
  Age: 33 Year
  Sex: Female
  Weight: 86.18 kg

DRUGS (2)
  1. LYRICA [Suspect]
     Active Substance: PREGABALIN
     Indication: GENITAL HERPES
     Dosage: UNK
     Dates: start: 2010
  2. LYRICA [Suspect]
     Active Substance: PREGABALIN
     Indication: PANCREATIC NEOPLASM
     Dosage: UNK

REACTIONS (6)
  - Drug effective for unapproved indication [Unknown]
  - Pre-existing condition improved [Unknown]
  - Pancreatitis [Unknown]
  - Malaise [Unknown]
  - Functional gastrointestinal disorder [Unknown]
  - Weight increased [Unknown]
